FAERS Safety Report 18161656 (Version 3)
Quarter: 2021Q2

REPORT INFORMATION
  Report Type: Spontaneous
  Country: US (occurrence: US)
  Receive Date: 20200818
  Receipt Date: 20210414
  Transmission Date: 20210717
  Serious: No
  Sender: FDA-Public Use
  Company Number: US-SA-2020SA216904

PATIENT
  Age: 51 Year
  Sex: Female

DRUGS (10)
  1. DUPIXENT [Suspect]
     Active Substance: DUPILUMAB
     Indication: ECZEMA
     Dosage: 300 MG, QOW
     Route: 058
     Dates: start: 20200817
  2. ESCITALOPRAM [Concomitant]
     Active Substance: ESCITALOPRAM OXALATE
  3. IBUPROFEN. [Concomitant]
     Active Substance: IBUPROFEN
  4. METHYLPRED [Concomitant]
     Active Substance: METHYLPREDNISOLONE
  5. METHOCARBAMOL. [Concomitant]
     Active Substance: METHOCARBAMOL
  6. CYCLOBENZAPRIN [Concomitant]
     Active Substance: CYCLOBENZAPRINE
  7. PIMECROLIMUS. [Concomitant]
     Active Substance: PIMECROLIMUS
  8. METRONIDAZOLE. [Concomitant]
     Active Substance: METRONIDAZOLE
  9. PREDNISONE. [Concomitant]
     Active Substance: PREDNISONE
  10. NITROFURANTIN [Concomitant]
     Active Substance: NITROFURANTOIN

REACTIONS (4)
  - Eczema [Not Recovered/Not Resolved]
  - Rash [Not Recovered/Not Resolved]
  - Product dose omission issue [Unknown]
  - Pruritus [Not Recovered/Not Resolved]

NARRATIVE: CASE EVENT DATE: 20200817
